FAERS Safety Report 4907157-4 (Version None)
Quarter: 2006Q1

REPORT INFORMATION
  Report Type: 
  Country: None (occurrence: None)
  Receive Date: 20060206
  Receipt Date: 20060126
  Transmission Date: 20060701
  Serious: Yes (Hospitalization, Other)
  Sender: FDA-Public Use
  Company Number: GBWYE339327JAN06

PATIENT
  Age: 60 Year
  Sex: Male

DRUGS (5)
  1. IBUPROFEN [Suspect]
     Indication: BACK PAIN
     Dosage: 400 MG 3X PER 1 DAY ORAL
     Route: 048
     Dates: start: 20051230, end: 20060105
  2. OMEPRAZOLE [Concomitant]
  3. MORPHINE SULFATE [Concomitant]
  4. GABAPENTIN [Concomitant]
  5. DIAZEPAM [Concomitant]

REACTIONS (1)
  - RENAL FAILURE ACUTE [None]
